FAERS Safety Report 21718593 (Version 2)
Quarter: 2023Q1

REPORT INFORMATION
  Report Type: Spontaneous
  Country: US (occurrence: US)
  Receive Date: 20221212
  Receipt Date: 20230228
  Transmission Date: 20230417
  Serious: Yes (Life-Threatening, Hospitalization, Other)
  Sender: FDA-Public Use
  Company Number: US-STRIDES ARCOLAB LIMITED-2022SP016520

PATIENT
  Age: 65 Year
  Sex: Female

DRUGS (2)
  1. HYDRALAZINE HCL [Suspect]
     Active Substance: HYDRALAZINE HYDROCHLORIDE
     Indication: Hypertension
     Dosage: UNK
     Route: 042
  2. HYDRALAZINE HCL [Suspect]
     Active Substance: HYDRALAZINE HYDROCHLORIDE
     Dosage: 50 MILLIGRAM, BID (INITIAL DOSE UNKNOWN; LATER DOSE UP TITRATED TO 50MG TWICE DAILY)
     Route: 065

REACTIONS (6)
  - Acute hepatic failure [Recovered/Resolved]
  - Acute hepatic failure [Recovered/Resolved]
  - Hepatic encephalopathy [Recovered/Resolved]
  - Hypoglycaemia [Recovered/Resolved]
  - Pericardial effusion [Recovered/Resolved]
  - Acidosis hyperchloraemic [Recovered/Resolved]
